FAERS Safety Report 8735891 (Version 2)
Quarter: 2012Q4

REPORT INFORMATION
  Report Type: 
  Country: US (occurrence: US)
  Receive Date: 20120822
  Receipt Date: 20120917
  Transmission Date: 20130627
  Serious: Yes (Other)
  Sender: FDA-Public Use
  Company Number: US-JNJFOC-20120807335

PATIENT
  Age: 58 None
  Sex: Female

DRUGS (4)
  1. REMICADE [Suspect]
     Indication: RHEUMATOID ARTHRITIS
     Dosage: received 7 infusions since restart
     Route: 042
     Dates: start: 201109
  2. REMICADE [Suspect]
     Indication: RHEUMATOID ARTHRITIS
     Dosage: dose also reported as 3 mg/kg
     Route: 042
     Dates: start: 200901, end: 201103
  3. METHOTREXATE [Suspect]
     Indication: RHEUMATOID ARTHRITIS
     Route: 065
     Dates: start: 201109, end: 201206
  4. METHOTREXATE [Suspect]
     Indication: RHEUMATOID ARTHRITIS
     Route: 065
     Dates: start: 200901, end: 201103

REACTIONS (3)
  - Leukocytoclastic vasculitis [Unknown]
  - Platelet count decreased [Recovering/Resolving]
  - Petechiae [Unknown]
